FAERS Safety Report 8131784-7 (Version None)
Quarter: 2012Q1

REPORT INFORMATION
  Report Type: 
  Country: None (occurrence: None)
  Receive Date: 20120103
  Receipt Date: 20111027
  Transmission Date: 20120608
  Serious: No
  Sender: FDA-Public Use
  Company Number: AE-2011-001737

PATIENT
  Age: 58 Year
  Sex: Male

DRUGS (6)
  1. XANAX [Concomitant]
  2. INCIVEK [Suspect]
     Dosage: (3 IN 1 D),ORAL
     Route: 048
     Dates: start: 20110907
  3. RIBAVIRIN [Concomitant]
  4. PEGINTERFERON (PEGINTERFERON ALFA-2A) [Concomitant]
  5. MORPHINE SULFATE IR (MORPHINE SULFATE) [Concomitant]
  6. AVINZA [Concomitant]

REACTIONS (1)
  - GASTRITIS [None]
